FAERS Safety Report 9293194 (Version 1)
Quarter: 2013Q2

REPORT INFORMATION
  Report Type: Spontaneous
  Country: FR (occurrence: FR)
  Receive Date: 20130516
  Receipt Date: 20130516
  Transmission Date: 20140414
  Serious: Yes (Death, Other)
  Sender: FDA-Public Use
  Company Number: PHHY2013FR047385

PATIENT
  Age: 56 Year
  Sex: Male

DRUGS (9)
  1. AMLODIPINE [Suspect]
  2. PHENOBARBITAL [Interacting]
  3. LAMOTRIGINE [Interacting]
  4. ATORVASTATIN [Interacting]
  5. CARBAMAZEPINE [Interacting]
  6. CLONAZEPAM [Interacting]
  7. LACOSAMIDE [Interacting]
     Indication: STATUS EPILEPTICUS
     Dosage: 7 G, UNK
  8. GABAPENTIN [Concomitant]
  9. VALSARTAN [Concomitant]

REACTIONS (12)
  - Multi-organ failure [Fatal]
  - Overdose [Fatal]
  - Nodal rhythm [Unknown]
  - Bifascicular block [Unknown]
  - Loss of consciousness [Unknown]
  - Cardiac arrest [Unknown]
  - Electrocardiogram QRS complex prolonged [Unknown]
  - Distributive shock [Unknown]
  - Suicide attempt [Unknown]
  - Toxicity to various agents [Unknown]
  - Bundle branch block right [Unknown]
  - Drug interaction [Unknown]
